FAERS Safety Report 5753792-3 (Version None)
Quarter: 2008Q2

REPORT INFORMATION
  Report Type: 
  Country: None (occurrence: None)
  Receive Date: 20080530
  Receipt Date: 20080527
  Transmission Date: 20081010
  Serious: Yes (Life-Threatening, Hospitalization)
  Sender: FDA-Public Use
  Company Number: FR-ASTRAZENECA-2008CG00804

PATIENT
  Age: 30118 Day
  Sex: Male

DRUGS (5)
  1. ATACAND [Suspect]
     Route: 048
     Dates: end: 20080501
  2. CARDENSIEL [Suspect]
     Route: 048
     Dates: end: 20080501
  3. LASILIX [Suspect]
     Route: 048
     Dates: end: 20080501
  4. ALDACTONE [Suspect]
     Route: 048
     Dates: end: 20080501
  5. DISCOTRINE [Concomitant]
     Route: 062

REACTIONS (4)
  - BRADYCARDIA [None]
  - DEHYDRATION [None]
  - HYPERKALAEMIA [None]
  - RENAL FAILURE ACUTE [None]
